FAERS Safety Report 6094588-5 (Version None)
Quarter: 2009Q1

REPORT INFORMATION
  Report Type: 
  Country: None (occurrence: None)
  Receive Date: 20090226
  Receipt Date: 20090216
  Transmission Date: 20090719
  Serious: Yes (Other)
  Sender: FDA-Public Use
  Company Number: TW-ELI_LILLY_AND_COMPANY-TW200902003870

PATIENT
  Age: 38 Year
  Sex: Male

DRUGS (1)
  1. ZYPREXA [Suspect]
     Indication: SCHIZOPHRENIA, PARANOID TYPE
     Dosage: 10-20 MG, DAILY (1/D)
     Route: 048
     Dates: end: 20050101

REACTIONS (2)
  - METABOLIC SYNDROME [None]
  - PLEUROTHOTONUS [None]
